FAERS Safety Report 25733045 (Version 3)
Quarter: 2025Q3

REPORT INFORMATION
  Report Type: Spontaneous
  Country: BR (occurrence: BR)
  Receive Date: 20250828
  Receipt Date: 20250926
  Transmission Date: 20251021
  Serious: Yes (Other)
  Sender: CHEPLAPHARM
  Company Number: BR-MOKSHA8-1804

PATIENT
  Sex: Female
  Weight: 86 kg

DRUGS (16)
  1. BROMAZEPAM [Suspect]
     Active Substance: BROMAZEPAM
     Indication: Seizure
     Dosage: PRESCRIBED BY A PHYSICIAN, AT A DOSAGE OF 1 TABLET IN THE AFTERNOON
  2. CLONAZEPAM [Suspect]
     Active Substance: CLONAZEPAM
     Indication: Dyspnoea
     Dates: start: 1979
  3. CLONAZEPAM [Suspect]
     Active Substance: CLONAZEPAM
     Indication: Seizure
     Dates: start: 1979
  4. CLONAZEPAM [Suspect]
     Active Substance: CLONAZEPAM
     Indication: Syncope
     Dates: start: 1979
  5. CLONAZEPAM [Suspect]
     Active Substance: CLONAZEPAM
     Indication: Dyspnoea
     Dosage: - STRENGTH: 2.5 MG/ML?- USING THE MEDICATION FOR 40 YEARS (SINCE 1985) AT A DOSE OF 25 DROPS AT ...
     Dates: start: 1985, end: 20250819
  6. CLONAZEPAM [Suspect]
     Active Substance: CLONAZEPAM
     Indication: Seizure
     Dosage: - STRENGTH: 2.5 MG/ML?- USING THE MEDICATION FOR 40 YEARS (SINCE 1985) AT A DOSE OF 25 DROPS AT ...
     Dates: start: 1985, end: 20250819
  7. CLONAZEPAM [Suspect]
     Active Substance: CLONAZEPAM
     Indication: Syncope
     Dosage: - STRENGTH: 2.5 MG/ML?- USING THE MEDICATION FOR 40 YEARS (SINCE 1985) AT A DOSE OF 25 DROPS AT ...
     Dates: start: 1985, end: 20250819
  8. CLONAZEPAM [Suspect]
     Active Substance: CLONAZEPAM
     Indication: Dyspnoea
  9. CLONAZEPAM [Suspect]
     Active Substance: CLONAZEPAM
     Indication: Seizure
  10. CLONAZEPAM [Suspect]
     Active Substance: CLONAZEPAM
     Indication: Syncope
  11. NORTRIPTYLINE [Suspect]
     Active Substance: NORTRIPTYLINE
     Indication: Depression
     Dosage: - USED SINCE SHE WAS 18 TO TREAT DEPRESSION AND STRESS?- AT A DOSAGE OF ONE TABLET IN THE AFTERN...
  12. NORTRIPTYLINE [Suspect]
     Active Substance: NORTRIPTYLINE
     Indication: Stress
     Dosage: - USED SINCE SHE WAS 18 TO TREAT DEPRESSION AND STRESS?- AT A DOSAGE OF ONE TABLET IN THE AFTERN...
  13. PARNATE [Suspect]
     Active Substance: TRANYLCYPROMINE SULFATE
     Indication: Depression
  14. PARNATE [Suspect]
     Active Substance: TRANYLCYPROMINE SULFATE
     Indication: Stress
  15. CAPTOPRIL [Concomitant]
     Active Substance: CAPTOPRIL
     Indication: Hypertension
     Dosage: AT A DOSAGE OF TWO TABLETS DAILY (ONE IN THE MORNING AND ONE IN THE EVENING)
  16. TRANSAMIN [Concomitant]
     Active Substance: TRANEXAMIC ACID
     Indication: Haemorrhage prophylaxis
     Dosage: 250 MG, AT A DOSAGE OF TWO TABLETS DAILY (ONE IN THE MORNING AND ONE AT NIGHT)

REACTIONS (9)
  - Cerebrovascular accident [Recovered/Resolved]
  - Drug dependence [Not Recovered/Not Resolved]
  - Gastritis [Not Recovered/Not Resolved]
  - Dyspnoea [Not Recovered/Not Resolved]
  - Epistaxis [Recovered/Resolved]
  - Product availability issue [Not Recovered/Not Resolved]
  - Vomiting [Recovered/Resolved]
  - Dyspepsia [Recovered/Resolved]
  - Off label use [Unknown]

NARRATIVE: CASE EVENT DATE: 19790101
